FAERS Safety Report 25763787 (Version 1)
Quarter: 2025Q3

REPORT INFORMATION
  Report Type: Spontaneous
  Country: US (occurrence: US)
  Receive Date: 20250905
  Receipt Date: 20250905
  Transmission Date: 20251021
  Serious: No
  Sender: DOMPE FARMACEUTICI
  Company Number: US-FARMAPROD-202411-3822

PATIENT
  Sex: Male
  Weight: 88.22 kg

DRUGS (14)
  1. OXERVATE [Suspect]
     Active Substance: CENEGERMIN-BKBJ
     Indication: Neurotrophic keratopathy
     Route: 047
     Dates: start: 20241002, end: 20241204
  2. OXERVATE [Suspect]
     Active Substance: CENEGERMIN-BKBJ
  3. PRED MILD [Concomitant]
     Active Substance: PREDNISOLONE ACETATE
  4. SYSTANE (HYPROMELLOSE 2910 (4000 MPA.S)) [Concomitant]
     Active Substance: HYPROMELLOSE 2910 (4000 MPA.S)
  5. CITALOPRAM HYDROBROMIDE [Concomitant]
     Active Substance: CITALOPRAM HYDROBROMIDE
  6. ATORVASTATIN CALCIUM [Concomitant]
     Active Substance: ATORVASTATIN CALCIUM
  7. ELIQUIS [Concomitant]
     Active Substance: APIXABAN
  8. CLONAZEPAM [Concomitant]
     Active Substance: CLONAZEPAM
  9. TYLENOL 8HR [Concomitant]
     Active Substance: ACETAMINOPHEN
  10. OMEPRAZOLE [Concomitant]
     Active Substance: OMEPRAZOLE
  11. IRBESARTAN [Concomitant]
     Active Substance: IRBESARTAN
  12. POLYETHYLENE GLYCOL 3350 [Concomitant]
     Active Substance: POLYETHYLENE GLYCOL 3350
  13. LATANOPROST [Concomitant]
     Active Substance: LATANOPROST
  14. SOTALOL [Concomitant]
     Active Substance: SOTALOL

REACTIONS (2)
  - Rhinorrhoea [Not Recovered/Not Resolved]
  - Drug ineffective [Unknown]
